FAERS Safety Report 10901616 (Version 1)
Quarter: 2015Q1

REPORT INFORMATION
  Report Type: Spontaneous
  Country: US (occurrence: US)
  Receive Date: 20150310
  Receipt Date: 20150310
  Transmission Date: 20150721
  Serious: No
  Sender: FDA-Public Use
  Company Number: US-ELI_LILLY_AND_COMPANY-US201502003594

PATIENT
  Sex: Male

DRUGS (2)
  1. AXIRON [Suspect]
     Active Substance: TESTOSTERONE
     Indication: BLOOD TESTOSTERONE DECREASED
     Dosage: 90 MG, QD
     Route: 065
     Dates: end: 201502
  2. AXIRON [Suspect]
     Active Substance: TESTOSTERONE
     Dosage: 90 MG, QD
     Route: 065

REACTIONS (2)
  - Drug dose omission [Unknown]
  - Incorrect dose administered [Recovered/Resolved]
